FAERS Safety Report 5295339-4 (Version None)
Quarter: 2007Q2

REPORT INFORMATION
  Report Type: 
  Country: None (occurrence: None)
  Receive Date: 20070412
  Receipt Date: 20070331
  Transmission Date: 20071010
  Serious: Yes (Other)
  Sender: FDA-Public Use
  Company Number: US-PFIZER INC-2007010511

PATIENT
  Age: 7 Year
  Sex: Female

DRUGS (2)
  1. ZITHROMAX [Suspect]
     Indication: BRONCHOPNEUMONIA
     Dates: start: 20070205, end: 20070207
  2. ADVAIR DISKUS 100/50 [Concomitant]

REACTIONS (2)
  - LUNG INFILTRATION [None]
  - URTICARIA [None]
